FAERS Safety Report 12928095 (Version 1)
Quarter: 2016Q4

REPORT INFORMATION
  Report Type: Spontaneous
  Country: US (occurrence: US)
  Receive Date: 20161110
  Receipt Date: 20161110
  Transmission Date: 20170207
  Serious: Yes (Life-Threatening, Hospitalization, Disabling, Congenital Anomaly, Other)
  Sender: FDA-Public Use
  Company Number: None

PATIENT
  Age: 69 Year
  Sex: Female
  Weight: 62.65 kg

DRUGS (29)
  1. BIOTIN [Concomitant]
     Active Substance: BIOTIN
  2. CALCIUM AND MAGNESIUM CARBONAT (MYLANTA) [Concomitant]
  3. CYCLOSPORINE (RESTASIS) [Concomitant]
  4. DOCUSATE CALCIUM (SURFAK) [Concomitant]
  5. DENOSUMAB (PROLIA) [Concomitant]
  6. CYMBALTA [Concomitant]
     Active Substance: DULOXETINE HYDROCHLORIDE
  7. KETOCONAZOLE (NIZORAL) [Concomitant]
  8. CLONAZEPAM (KLONOPIN) [Concomitant]
  9. LAMOTRIGINE (LAMICTAL) [Concomitant]
  10. MIRALAX [Concomitant]
     Active Substance: POLYETHYLENE GLYCOL 3350
  11. ZANAFLEX [Concomitant]
     Active Substance: TIZANIDINE HYDROCHLORIDE
  12. CMPD LIDOCAINE, PRILOCAINE, LAMOTRIGINE, MELOXICAM [Concomitant]
  13. FLUDROCORTISONE (FLORINEF) [Concomitant]
  14. GLATIRAMER (COPAXONE) [Concomitant]
  15. AMANTADINE HCL (SYMMETREL) [Concomitant]
  16. FEXOFENADINE HCL (ALLEGRA ORAL) [Concomitant]
  17. UBIQUINONE (ULTRA COQ10 ORAL) [Concomitant]
  18. CMPD PAIN MANAGEMENT COMPOUND [Concomitant]
  19. FESOTERODINE (TOVIAZ) [Concomitant]
  20. BRIMONIMONIDINE EYE DROP FOR GLAUCOMA [Suspect]
     Active Substance: BRIMONIDINE TARTRATE
     Indication: GLAUCOMA
     Dosage: ?          QUANTITY:-IST ANY RELEVANT TESTS O;?
     Route: 047
     Dates: start: 201506
  21. BLOOD SUGAR DIAGNOSTIC (ONE TOUCH ULTRA TEST) [Concomitant]
  22. CHOLECALCIFEROL, VITAMIN D3 [Concomitant]
  23. MIRABEGROM (MYRBETRIQ) [Concomitant]
  24. VITAMIN B COMPLEX [Concomitant]
     Active Substance: CYANOCOBALAMIN\DEXPANTHENOL\NIACINAMIDE\PYRIDOXINE HYDROCHLORIDE\RIBOFLAVIN 5^-PHOSPHATE SODIUM\THIAMINE HYDROCHLORIDE\VITAMIN B COMPLEX
  25. MECLIZINE (ANTIVERT) [Concomitant]
  26. ASCORBIC ACID (VITAMIN C) [Concomitant]
     Active Substance: ASCORBIC ACID
  27. PLAVIX [Concomitant]
     Active Substance: CLOPIDOGREL BISULFATE
  28. LANSOPRAZOLE (PREVACID ORAL) [Concomitant]
  29. TRAZODONE (DESYREL) [Concomitant]

REACTIONS (3)
  - Dementia [None]
  - Speech disorder [None]
  - Seizure [None]
